FAERS Safety Report 6930371-3 (Version None)
Quarter: 2010Q3

REPORT INFORMATION
  Report Type: 
  Country: None (occurrence: None)
  Receive Date: 20100818
  Receipt Date: 20100810
  Transmission Date: 20110219
  Serious: Yes (Hospitalization)
  Sender: FDA-Public Use
  Company Number: JP-ROCHE-721222

PATIENT
  Sex: Male
  Weight: 52 kg

DRUGS (5)
  1. XELODA [Suspect]
     Indication: COLON CANCER
     Route: 048
     Dates: start: 20100407, end: 20100623
  2. PYDOXAL [Concomitant]
     Dosage: REPORTED AS PYDOXAL TAB(PYRIDOXAL PHOSPHATE).
     Route: 048
     Dates: start: 20100407, end: 20100628
  3. PROTECADIN [Concomitant]
     Route: 048
     Dates: start: 20100407, end: 20100628
  4. PANTOSIN [Concomitant]
     Dosage: REPORTED AS PANTOSIN(PANTETHINE).  FORM:UNCERTAINTY
     Route: 065
     Dates: start: 20100407, end: 20100628
  5. MAGNESIUM OXIDE [Concomitant]
     Dosage: FORM: PERORAL AGENT.
     Route: 048
     Dates: start: 20100407, end: 20100628

REACTIONS (1)
  - LIVER DISORDER [None]
